FAERS Safety Report 8216944-9 (Version None)
Quarter: 2012Q1

REPORT INFORMATION
  Report Type: 
  Country: None (occurrence: None)
  Receive Date: 20120319
  Receipt Date: 20120306
  Transmission Date: 20120608
  Serious: Yes (Other)
  Sender: FDA-Public Use
  Company Number: CH-BRISTOL-MYERS SQUIBB COMPANY-16455545

PATIENT

DRUGS (4)
  1. IFOSFAMIDE [Suspect]
     Indication: EWING'S SARCOMA
  2. VINCRISTINE [Suspect]
     Indication: EWING'S SARCOMA
  3. CISPLATIN [Suspect]
     Indication: EWING'S SARCOMA
  4. ADRIAMYCIN PFS [Suspect]
     Indication: EWING'S SARCOMA

REACTIONS (1)
  - INTRACRANIAL VENOUS SINUS THROMBOSIS [None]
